FAERS Safety Report 16411762 (Version 4)
Quarter: 2019Q3

REPORT INFORMATION
  Report Type: Report from Study
  Country: CA (occurrence: CA)
  Receive Date: 20190610
  Receipt Date: 20190710
  Transmission Date: 20191004
  Serious: Yes (Death, Hospitalization)
  Sender: FDA-Public Use
  Company Number: CA-ACTELION-A-NJ2019-187712

PATIENT
  Sex: Female

DRUGS (20)
  1. SILDENAFIL. [Concomitant]
     Active Substance: SILDENAFIL
     Dosage: 20 UNK, TID
     Dates: end: 20190623
  2. ELIQUIS [Concomitant]
     Active Substance: APIXABAN
  3. SPIRONOLACTONE. [Concomitant]
     Active Substance: SPIRONOLACTONE
  4. REVATIO [Concomitant]
     Active Substance: SILDENAFIL CITRATE
  5. LYRICA [Concomitant]
     Active Substance: PREGABALIN
  6. CARIPUL [Suspect]
     Active Substance: EPOPROSTENOL
     Dosage: 30000 NG/ML
     Route: 042
     Dates: start: 20190207
  7. INSULIN [Concomitant]
     Active Substance: INSULIN NOS
  8. IRON [Concomitant]
     Active Substance: IRON
  9. VITAMIN C [Concomitant]
     Active Substance: ASCORBIC ACID
  10. VITAMIN B [Concomitant]
     Active Substance: VITAMIN B
  11. APIXABAN [Concomitant]
     Active Substance: APIXABAN
     Dosage: 5 UNK, BID
     Dates: end: 20190623
  12. CARIPUL [Suspect]
     Active Substance: EPOPROSTENOL
     Indication: PULMONARY ARTERIAL HYPERTENSION
     Dosage: UNK
     Route: 042
     Dates: start: 20190207, end: 20190623
  13. CARIPUL [Suspect]
     Active Substance: EPOPROSTENOL
     Dosage: 45000 NG/KG
     Route: 042
  14. FUROSEMIDE. [Concomitant]
     Active Substance: FUROSEMIDE
     Dosage: UNK
  15. VOLIBRIS [Suspect]
     Active Substance: AMBRISENTAN
     Indication: PRODUCT USED FOR UNKNOWN INDICATION
     Route: 065
  16. FUROSEMIDE. [Concomitant]
     Active Substance: FUROSEMIDE
     Dosage: UNK
  17. FUROSEMIDE. [Concomitant]
     Active Substance: FUROSEMIDE
     Dosage: 80 UNK, BID
     Dates: end: 20190623
  18. AMIODARONE [Concomitant]
     Active Substance: AMIODARONE
     Dosage: 100 UNK, QD
     Dates: end: 20190623
  19. AMIODARONE [Concomitant]
     Active Substance: AMIODARONE
     Dosage: 20 NG/KG
     Dates: start: 201902
  20. METFORMIN [Concomitant]
     Active Substance: METFORMIN HYDROCHLORIDE

REACTIONS (18)
  - Renal failure [Fatal]
  - Gastrointestinal haemorrhage [Fatal]
  - Malaise [Recovering/Resolving]
  - Headache [Recovering/Resolving]
  - Dyspnoea [Unknown]
  - Unevaluable event [Unknown]
  - Concomitant disease progression [Fatal]
  - Transfusion [Not Recovered/Not Resolved]
  - Abdominal distension [Unknown]
  - Arthralgia [Recovering/Resolving]
  - Peripheral swelling [Unknown]
  - Abdominal discomfort [Recovering/Resolving]
  - Fatigue [Unknown]
  - Breast swelling [Unknown]
  - Oedema [Unknown]
  - Acute kidney injury [Not Recovered/Not Resolved]
  - Diarrhoea [Recovering/Resolving]
  - Pain in jaw [Recovering/Resolving]
